FAERS Safety Report 8809000 (Version 2)
Quarter: 2012Q4

REPORT INFORMATION
  Report Type: 
  Country: US (occurrence: US)
  Receive Date: 20120926
  Receipt Date: 20121226
  Transmission Date: 20130627
  Serious: Yes (Hospitalization)
  Sender: FDA-Public Use
  Company Number: US-BAYER-2012-098407

PATIENT
  Age: 35 Year
  Sex: Female
  Weight: 86.17 kg

DRUGS (11)
  1. YASMIN [Suspect]
     Indication: CONTRACEPTION
     Dosage: UNK
     Dates: start: 200607, end: 201003
  2. SPIRONOLACTONE [Concomitant]
     Dosage: 25 mg, QD
     Route: 048
  3. FUROSEMIDE [Concomitant]
     Indication: ANKLE SWELLING
     Dosage: 20 mg, one-half tablet by mouth every day
     Route: 048
  4. OMEPRAZOLE [Concomitant]
     Dosage: 20 mg, extended release
     Route: 048
  5. METFORMIN HYDROCHLORIDE [Concomitant]
     Dosage: 500 mg, extended release BID
     Route: 048
  6. ADAPALENE [Concomitant]
     Dosage: 0.3 %, qHS
     Route: 061
  7. FLUTICASONE PROPIONATE [Concomitant]
     Dosage: 0.05 %, QD
     Route: 045
  8. BENZOYL PEROXIDE [Concomitant]
     Dosage: 4 %, UNK
     Route: 061
  9. TAZORAC [Concomitant]
     Dosage: 0.05 %, UNK
     Route: 061
  10. HYDROCODONE W/APAP [Concomitant]
     Dosage: 5-500 mg one to two every six hours as needed
  11. VICODIN [Concomitant]
     Indication: PAIN MANAGEMENT
     Dosage: 5-500mg take 1-2 tabs every night prn
     Route: 048

REACTIONS (4)
  - Cholecystitis [None]
  - Pain [None]
  - Injury [None]
  - Pain [None]
